FAERS Safety Report 20691499 (Version 1)
Quarter: 2022Q2

REPORT INFORMATION
  Report Type: Spontaneous
  Country: CN (occurrence: CN)
  Receive Date: 20220408
  Receipt Date: 20220408
  Transmission Date: 20220721
  Serious: Yes (Other)
  Sender: FDA-Public Use
  Company Number: CN-ABBOTT-2022A-1347525

PATIENT
  Age: 53 Year
  Sex: Male
  Weight: 76.5 kg

DRUGS (7)
  1. FENOFIBRATE [Suspect]
     Active Substance: FENOFIBRATE
     Indication: Hyperlipidaemia
     Dosage: DAILY DOSE: 0.2 GRAM
     Route: 048
     Dates: start: 20220331, end: 20220401
  2. LEVOTHYROXINE SODIUM [Concomitant]
     Active Substance: LEVOTHYROXINE SODIUM
     Indication: Hypothyroidism
     Dosage: DAILY DOSE: 50 MG
     Route: 048
     Dates: start: 20220323, end: 20220406
  3. SODIUM CHLORIDE [Concomitant]
     Active Substance: SODIUM CHLORIDE
     Indication: Vehicle solution use
     Dosage: DAILY DOSE: 100 ML
     Route: 041
     Dates: start: 20220322, end: 20220401
  4. SODIUM CHLORIDE [Concomitant]
     Active Substance: SODIUM CHLORIDE
     Dosage: DAILY DOSE: 200 ML
     Route: 041
     Dates: start: 20220322, end: 20220401
  5. CEFMETAZOLE SODIUM [Concomitant]
     Active Substance: CEFMETAZOLE SODIUM
     Indication: Pneumonia
     Dosage: DAILY DOSE: 400 GM POWDER-INJECTION
     Route: 041
     Dates: start: 20220322, end: 20220401
  6. AMBROXOL HYDROCHLORIDE [Concomitant]
     Active Substance: AMBROXOL HYDROCHLORIDE
     Indication: Pneumonia
     Dosage: DAILY DOSE 30 ML
     Route: 048
     Dates: start: 20220322, end: 20220406
  7. MOXIFLOXACIN HYDROCHLORIDE [Concomitant]
     Active Substance: MOXIFLOXACIN HYDROCHLORIDE
     Indication: Pneumonia
     Dosage: DAILY DOSE: 0.4 GM
     Route: 041
     Dates: start: 20220322, end: 20220401

REACTIONS (2)
  - Pruritus [Recovering/Resolving]
  - Rash [Recovering/Resolving]

NARRATIVE: CASE EVENT DATE: 20220401
